FAERS Safety Report 4369635-9 (Version None)
Quarter: 2004Q2

REPORT INFORMATION
  Report Type: 
  Country: None (occurrence: None)
  Receive Date: 20040528
  Receipt Date: 20040519
  Transmission Date: 20050107
  Serious: Yes (Hospitalization)
  Sender: FDA-Public Use
  Company Number: 2004UW08252

PATIENT
  Age: 46 Year
  Sex: Female
  Weight: 148.3262 kg

DRUGS (7)
  1. CRESTOR [Suspect]
     Dosage: 10 MG PO
     Route: 048
     Dates: start: 20040123
  2. REGLAN [Concomitant]
  3. LISINOPRIL [Concomitant]
  4. PRILOSEC [Concomitant]
  5. GLUCOVANCE [Concomitant]
  6. ACTOS [Concomitant]
  7. DICLOFENAC [Concomitant]

REACTIONS (2)
  - CARDIAC FAILURE CONGESTIVE [None]
  - WEIGHT DECREASED [None]
